FAERS Safety Report 11034732 (Version 3)
Quarter: 2025Q3

REPORT INFORMATION
  Report Type: Report from Study
  Country: US (occurrence: US)
  Receive Date: 20150415
  Receipt Date: 20250923
  Transmission Date: 20251021
  Serious: Yes (Other)
  Sender: TAKEDA
  Company Number: US-ARIAD PHARMACEUTICALS, INC-2015US004757

PATIENT
  Sex: Male

DRUGS (3)
  1. PONATINIB [Suspect]
     Active Substance: PONATINIB
     Indication: Chronic myeloid leukaemia
     Dosage: 15 MILLIGRAM, QD
     Dates: start: 20140212
  2. PONATINIB [Suspect]
     Active Substance: PONATINIB
     Dosage: 15 MILLIGRAM, QD
  3. FINASTERIDE [Concomitant]
     Active Substance: FINASTERIDE

REACTIONS (4)
  - Aphasia [Unknown]
  - Memory impairment [Unknown]
  - Disturbance in attention [Unknown]
  - Product use issue [Unknown]
